FAERS Safety Report 23922684 (Version 3)
Quarter: 2025Q3

REPORT INFORMATION
  Report Type: Report from Study
  Country: CA (occurrence: CA)
  Receive Date: 20240531
  Receipt Date: 20250919
  Transmission Date: 20251021
  Serious: Yes (Other)
  Sender: TAKEDA
  Company Number: CA-TAKEDA-2024TUS054273

PATIENT
  Age: 57 Year
  Sex: Female

DRUGS (9)
  1. VEDOLIZUMAB [Suspect]
     Active Substance: VEDOLIZUMAB
     Indication: Crohn^s disease
  2. VEDOLIZUMAB [Suspect]
     Active Substance: VEDOLIZUMAB
  3. VEDOLIZUMAB [Suspect]
     Active Substance: VEDOLIZUMAB
  4. PREDNISONE [Concomitant]
     Active Substance: PREDNISONE
  5. ZOPICLONE [Concomitant]
     Active Substance: ZOPICLONE
  6. DILTIAZEM [Concomitant]
     Active Substance: DILTIAZEM
  7. RABEPRAZOLE [Concomitant]
     Active Substance: RABEPRAZOLE
  8. BUTRANS [Concomitant]
     Active Substance: BUPRENORPHINE
  9. ASPIRIN [Concomitant]
     Active Substance: ASPIRIN
     Dates: start: 20250711, end: 20250731

REACTIONS (1)
  - Blood pressure increased [Not Recovered/Not Resolved]

NARRATIVE: CASE EVENT DATE: 20240529
